FAERS Safety Report 6305714-4 (Version None)
Quarter: 2009Q3

REPORT INFORMATION
  Report Type: 
  Country: None (occurrence: None)
  Receive Date: 20090812
  Receipt Date: 20070829
  Transmission Date: 20100115
  Serious: Yes (Other)
  Sender: FDA-Public Use
  Company Number: US-ASTRAZENECA-2006UW11999

PATIENT
  Age: 13848 Day
  Sex: Male
  Weight: 149.7 kg

DRUGS (26)
  1. SEROQUEL [Suspect]
     Indication: ANXIETY
     Route: 048
     Dates: start: 19990101, end: 20050101
  2. SEROQUEL [Suspect]
     Indication: DEPRESSION
     Route: 048
     Dates: start: 19990101, end: 20050101
  3. SEROQUEL [Suspect]
     Indication: BIPOLAR DISORDER
     Route: 048
     Dates: start: 19990101, end: 20050101
  4. SEROQUEL [Suspect]
     Dosage: 100 MG TO 900 MG
     Route: 048
     Dates: start: 20020913
  5. SEROQUEL [Suspect]
     Dosage: 100 MG TO 900 MG
     Route: 048
     Dates: start: 20020913
  6. SEROQUEL [Suspect]
     Dosage: 100 MG TO 900 MG
     Route: 048
     Dates: start: 20020913
  7. ZYPREXA [Suspect]
     Dates: start: 19990101, end: 20010101
  8. ZYPREXA [Suspect]
     Dates: start: 19991217, end: 20010713
  9. GEODON [Concomitant]
  10. REGLAN [Concomitant]
     Dosage: 10 MG, ONE BY MOUTH 30 MINUTES BEFORE MEALS AND AT BEDTIME
     Dates: start: 20041118
  11. COGENTIN [Concomitant]
     Dates: start: 20000627, end: 20010713
  12. DEPAKOTE [Concomitant]
     Dosage: 500 MG TO 1500 MG
     Dates: start: 19991217
  13. LUVOX [Concomitant]
     Dosage: 100 MG TO 200 MG
     Route: 048
     Dates: start: 19991217
  14. CLOMIPRAMINE HCL [Concomitant]
     Dates: start: 20030311
  15. HALDOL [Concomitant]
     Indication: AGITATION
     Route: 048
     Dates: start: 20030311
  16. ATIVAN [Concomitant]
     Indication: AGITATION
     Route: 048
     Dates: start: 20030311
  17. ASPIRIN [Concomitant]
     Dosage: 81 MG TO 160 MG
     Route: 048
     Dates: start: 20030313
  18. GLUCOPHAGE [Concomitant]
     Dosage: 1000 MG TO 2000 MG
     Route: 048
     Dates: start: 20041118
  19. DIPHENOXYLATE [Concomitant]
     Dosage: 1 BID
     Route: 048
     Dates: start: 20020815
  20. PROMETHAZINE [Concomitant]
     Dosage: 25 MG 6 HR PRN
     Route: 048
     Dates: start: 20020815
  21. TYLENOL (CAPLET) [Concomitant]
     Dosage: EXTRA STRENGTH 2 BY MOUTH PRN
     Route: 048
     Dates: start: 20041118
  22. LYRICA [Concomitant]
     Dosage: 100 MG TO 400 MG
     Route: 048
     Dates: start: 20060802
  23. AMARYL [Concomitant]
     Dosage: DAILY
     Dates: start: 20060802
  24. TRICOR [Concomitant]
     Dosage: DAILY
     Dates: start: 20060802
  25. COMBIVENT [Concomitant]
     Dosage: AS NEEDED
     Dates: start: 20060918
  26. COUMADIN [Concomitant]
     Indication: PULMONARY EMBOLISM
     Route: 048
     Dates: start: 20060802

REACTIONS (7)
  - BLOOD GLUCOSE INCREASED [None]
  - DIABETES MELLITUS [None]
  - DIABETIC NEUROPATHY [None]
  - HYPERGLYCAEMIA [None]
  - NEUROPATHY PERIPHERAL [None]
  - PANCREATITIS [None]
  - TYPE 2 DIABETES MELLITUS [None]
